FAERS Safety Report 7872826-3 (Version None)
Quarter: 2011Q4

REPORT INFORMATION
  Report Type: 
  Country: None (occurrence: None)
  Receive Date: 20111030
  Receipt Date: 20110422
  Transmission Date: 20120403
  Serious: No
  Sender: FDA-Public Use
  Company Number: US-AMGEN-USASP2011021220

PATIENT
  Age: 36 Year
  Sex: Female

DRUGS (1)
  1. ENBREL [Suspect]
     Indication: PSORIASIS
     Dosage: 50 MG, QWK
     Dates: start: 20101202

REACTIONS (9)
  - NASAL CONGESTION [None]
  - COUGH [None]
  - WHEEZING [None]
  - EAR PAIN [None]
  - DYSPNOEA [None]
  - EAR DISCOMFORT [None]
  - FATIGUE [None]
  - BRONCHITIS [None]
  - CHEST DISCOMFORT [None]
